FAERS Safety Report 6471550-1 (Version None)
Quarter: 2009Q4

REPORT INFORMATION
  Report Type: 
  Country: None (occurrence: None)
  Receive Date: 20091203
  Receipt Date: 20090515
  Transmission Date: 20100525
  Serious: No
  Sender: FDA-Public Use
  Company Number: US-AMGEN-KDL321685

PATIENT
  Sex: Female
  Weight: 42 kg

DRUGS (1)
  1. ENBREL [Suspect]
     Indication: ANKYLOSING SPONDYLITIS
     Route: 058
     Dates: start: 20040201

REACTIONS (5)
  - ANIMAL SCRATCH [None]
  - ARTHROPOD BITE [None]
  - IMPAIRED HEALING [None]
  - SKIN LACERATION [None]
  - WOUND SECRETION [None]
